FAERS Safety Report 7928547-1 (Version None)
Quarter: 2011Q4

REPORT INFORMATION
  Report Type: 
  Country: None (occurrence: None)
  Receive Date: 20111118
  Receipt Date: 20111109
  Transmission Date: 20120403
  Serious: Yes (Hospitalization)
  Sender: FDA-Public Use
  Company Number: US-BRISTOL-MYERS SQUIBB COMPANY-16221939

PATIENT
  Age: 50 Year
  Sex: Female

DRUGS (1)
  1. COUMADIN [Suspect]
     Dates: start: 20110401

REACTIONS (4)
  - DIZZINESS [None]
  - PYREXIA [None]
  - PULMONARY EMBOLISM [None]
  - PLATELET DISORDER [None]
